FAERS Safety Report 5162976-7 (Version None)
Quarter: 2006Q4

REPORT INFORMATION
  Report Type: 
  Country: None (occurrence: None)
  Receive Date: 20061201
  Receipt Date: 20061117
  Transmission Date: 20070319
  Serious: Yes (Other)
  Sender: FDA-Public Use
  Company Number: DE-AMGEN-UK200756

PATIENT
  Sex: Male

DRUGS (1)
  1. ARANESP [Suspect]
     Indication: DIALYSIS
     Route: 065

REACTIONS (2)
  - HAEMOGLOBIN DECREASED [None]
  - IRON DEFICIENCY [None]
